FAERS Safety Report 6599209-0 (Version None)
Quarter: 2010Q1

REPORT INFORMATION
  Report Type: 
  Country: None (occurrence: None)
  Receive Date: 20100224
  Receipt Date: 20100211
  Transmission Date: 20100710
  Serious: Yes (Hospitalization, Other)
  Sender: FDA-Public Use
  Company Number: PHEH2008US08754

PATIENT
  Sex: Female

DRUGS (12)
  1. ZELNORM [Suspect]
     Indication: CONSTIPATION
     Dosage: 6 MG / DAILY
     Route: 048
     Dates: start: 20060601, end: 20070926
  2. ZELNORM [Suspect]
     Indication: IRRITABLE BOWEL SYNDROME
  3. HYZAAR [Concomitant]
     Dosage: 50/12.5 / DAILY
     Route: 048
  4. PREVACID [Concomitant]
     Dosage: 30 MG / DAILY
  5. UNIPHYL [Concomitant]
     Dosage: UNK
  6. AGGRENOX [Concomitant]
     Dosage: UNK / TWICE DAILY
  7. LIPITROL [Concomitant]
  8. MIRALAX [Concomitant]
     Dosage: 17 GMS / DAILY
  9. ASPIRIN [Concomitant]
     Dosage: 325 MG / DAILY
  10. THEOPHYLLINE [Concomitant]
     Dosage: 300 MG / BID
  11. VENTOLIN [Concomitant]
     Dosage: UNK / PRN
  12. K-TAB [Concomitant]
     Dosage: UNK / DAILY

REACTIONS (20)
  - ABDOMINAL PAIN [None]
  - ARTERIOSCLEROSIS [None]
  - BONE PAIN [None]
  - CEREBROVASCULAR ACCIDENT [None]
  - CONJUNCTIVITIS [None]
  - DIARRHOEA [None]
  - DIVERTICULUM [None]
  - FREQUENT BOWEL MOVEMENTS [None]
  - HYPERLIPIDAEMIA [None]
  - HYPOAESTHESIA [None]
  - INTERVERTEBRAL DISC DISORDER [None]
  - INTERVERTEBRAL DISC PROTRUSION [None]
  - LACUNAR INFARCTION [None]
  - LEFT VENTRICULAR DYSFUNCTION [None]
  - MUSCLE SPASMS [None]
  - NAUSEA [None]
  - OSTEOARTHRITIS [None]
  - PARAESTHESIA [None]
  - RENAL CYST [None]
  - SPINAL FUSION SURGERY [None]
